FAERS Safety Report 13916418 (Version 2)
Quarter: 2017Q4

REPORT INFORMATION
  Report Type: Report from Study
  Country: None (occurrence: IT)
  Receive Date: 20170829
  Receipt Date: 20171012
  Transmission Date: 20180320
  Serious: Yes (Hospitalization)
  Sender: FDA-Public Use
  Company Number: IT-ABBVIE-17K-083-2082842-00

PATIENT
  Age: 72 Year
  Sex: Male
  Weight: 62 kg

DRUGS (1)
  1. DUODOPA [Suspect]
     Active Substance: CARBIDOPA\LEVODOPA
     Indication: PARKINSON^S DISEASE
     Dosage: MD 6(PLUS3)?CR 2,8?ED 2
     Route: 050
     Dates: start: 20160614, end: 20171011

REACTIONS (2)
  - Surgery [Unknown]
  - Incorrect route of drug administration [Unknown]

NARRATIVE: CASE EVENT DATE: 20170714
